FAERS Safety Report 26061042 (Version 1)
Quarter: 2025Q4

REPORT INFORMATION
  Report Type: Spontaneous
  Country: BR (occurrence: BR)
  Receive Date: 20251118
  Receipt Date: 20251118
  Transmission Date: 20260118
  Serious: Yes (Other)
  Sender: AMGEN
  Company Number: BR-AMGEN-BRASP2025225346

PATIENT
  Age: 82 Year
  Sex: Female

DRUGS (1)
  1. PROLIA [Suspect]
     Active Substance: DENOSUMAB
     Indication: Product used for unknown indication
     Dosage: UNK, (60 MILLIGRAM)
     Route: 065

REACTIONS (2)
  - Femur fracture [Unknown]
  - Spinal fracture [Unknown]

NARRATIVE: CASE EVENT DATE: 20180101
